FAERS Safety Report 7836699-7 (Version None)
Quarter: 2011Q4

REPORT INFORMATION
  Report Type: 
  Country: None (occurrence: None)
  Receive Date: 20111024
  Receipt Date: 20101129
  Transmission Date: 20120403
  Serious: No
  Sender: FDA-Public Use
  Company Number: US-ABBOTT-10P-163-0688097-00

PATIENT
  Sex: Female

DRUGS (2)
  1. PATCHES [Concomitant]
     Indication: PRODUCT USED FOR UNKNOWN INDICATION
  2. LUPRON [Suspect]
     Indication: PRODUCT USED FOR UNKNOWN INDICATION

REACTIONS (4)
  - UTERINE DISORDER [None]
  - FEELING ABNORMAL [None]
  - FATIGUE [None]
  - APATHY [None]
